FAERS Safety Report 15713057 (Version 6)
Quarter: 2022Q3

REPORT INFORMATION
  Report Type: Report from Study
  Country: CN (occurrence: None)
  Receive Date: 20181212
  Receipt Date: 20220709
  Transmission Date: 20221026
  Serious: Yes (Hospitalization)
  Sender: FDA-Public Use
  Company Number: CN-ROCHE-2227603

PATIENT
  Age: 46 Year
  Sex: Female
  Weight: 50 kg

DRUGS (21)
  1. ATEZOLIZUMAB [Suspect]
     Active Substance: ATEZOLIZUMAB
     Indication: Ovarian cancer
     Dosage: THIS WAS ALSO THE MOST RECENT DOSE OF ATEZOLIZUAMB PRIOR TO LIVER DAMAGE ONSET
     Route: 041
     Dates: start: 20181206
  2. BEVACIZUMAB [Suspect]
     Active Substance: BEVACIZUMAB
     Indication: Ovarian cancer
     Dosage: IN 2018, MOST RECENT DOSE OF BEVACIZUMAB PRIOR TO SAE ONSET
     Route: 042
  3. PACLITAXEL [Suspect]
     Active Substance: PACLITAXEL
     Indication: Ovarian cancer
     Dosage: THIS WAS ALSO THE MOST RECENT DOSE OF PACLITAXEL (255 MG) PRIOR TO LIVER DAMAGE ONSET
     Route: 042
     Dates: start: 20181206
  4. CARBOPLATIN [Suspect]
     Active Substance: CARBOPLATIN
     Indication: Ovarian cancer
     Dosage: THIS WAS ALSO THE MOST RECENT DOSE OF CARBOPLATIN (730 MG) PRIOR TO LIVER DAMAGE ONSET
     Route: 042
     Dates: start: 20181206
  5. DEXAMETHASONE ACETATE [Concomitant]
     Active Substance: DEXAMETHASONE ACETATE
     Route: 048
     Dates: start: 20181204, end: 20181204
  6. DEXAMETHASONE SODIUM PHOSPHATE [Concomitant]
     Active Substance: DEXAMETHASONE SODIUM PHOSPHATE
     Route: 042
     Dates: start: 20181206, end: 20181206
  7. DEXAMETHASONE SODIUM PHOSPHATE [Concomitant]
     Active Substance: DEXAMETHASONE SODIUM PHOSPHATE
     Route: 042
     Dates: start: 20181205, end: 20181205
  8. LANSOPRAZOLE [Concomitant]
     Active Substance: LANSOPRAZOLE
     Dates: start: 20181206, end: 20181206
  9. AZASETRON HYDROCHLORIDE [Concomitant]
     Active Substance: AZASETRON HYDROCHLORIDE
     Dates: start: 20181206, end: 20181206
  10. SODIUM CHLORIDE [Concomitant]
     Active Substance: SODIUM CHLORIDE
     Dates: start: 20181206, end: 20181206
  11. AMIFOSTINE [Concomitant]
     Active Substance: AMIFOSTINE
     Dates: start: 20181206, end: 20181206
  12. INVERT SUGAR [Concomitant]
     Active Substance: INVERT SUGAR
     Dates: start: 20181206, end: 20181206
  13. GLUTATHIONE REDUCED [Concomitant]
     Dates: start: 20181206, end: 20181206
  14. GLUTATHIONE REDUCED [Concomitant]
     Dates: start: 20181207, end: 20181210
  15. LIDOCAINE HYDROCHLORIDE [Concomitant]
     Active Substance: LIDOCAINE HYDROCHLORIDE
     Dates: start: 20181206, end: 20181206
  16. POVIDONE-IODINE [Concomitant]
     Active Substance: POVIDONE-IODINE
     Dates: start: 20181206, end: 20181206
  17. MAGNESIUM SULFATE [Concomitant]
     Active Substance: MAGNESIUM SULFATE
     Dates: start: 20181205, end: 20181208
  18. GLYCOSAMINOGLYCANS [Concomitant]
     Active Substance: GLYCOSAMINOGLYCANS
     Dates: start: 20181206, end: 20181208
  19. FERROUS SUCCINATE [Concomitant]
     Active Substance: FERROUS SUCCINATE
     Indication: Anaemia
     Dates: start: 20181207, end: 20190123
  20. POTASSIUM CHLORIDE [Concomitant]
     Active Substance: POTASSIUM CHLORIDE
     Dosage: SUSTAINED RELEASED
     Dates: start: 20181207, end: 20181210
  21. CALCIUM GLUCONATE [Concomitant]
     Active Substance: CALCIUM GLUCONATE
     Dates: start: 20181207, end: 20181207

REACTIONS (1)
  - Liver injury [Recovered/Resolved]

NARRATIVE: CASE EVENT DATE: 20181207
